FAERS Safety Report 11828662 (Version 1)
Quarter: 2015Q4

REPORT INFORMATION
  Report Type: Spontaneous
  Country: US (occurrence: US)
  Receive Date: 20151211
  Receipt Date: 20151211
  Transmission Date: 20160305
  Serious: No
  Sender: FDA-Public Use
  Company Number: US-JUBILANT CADISTA PHARMACEUTICALS-2015JUB00192

PATIENT
  Age: 28 Year
  Sex: Female
  Weight: 58.96 kg

DRUGS (1)
  1. METHYLPREDNISOLONE. [Suspect]
     Active Substance: METHYLPREDNISOLONE
     Indication: RASH
     Dosage: UNK
     Route: 048
     Dates: start: 20150606, end: 201506

REACTIONS (5)
  - Erythema [Not Recovered/Not Resolved]
  - Acne [Not Recovered/Not Resolved]
  - Skin discolouration [Not Recovered/Not Resolved]
  - Urinary tract infection [Not Recovered/Not Resolved]
  - Immune system disorder [Not Recovered/Not Resolved]

NARRATIVE: CASE EVENT DATE: 201506
